FAERS Safety Report 8533734-8 (Version None)
Quarter: 2012Q3

REPORT INFORMATION
  Report Type: 
  Country: None (occurrence: None)
  Receive Date: 20120724
  Receipt Date: 20120713
  Transmission Date: 20120928
  Serious: Yes (Life-Threatening, Hospitalization, Other)
  Sender: FDA-Public Use
  Company Number: FR-MUTUAL PHARMACEUTICAL COMPANY, INC.-TMDL20120005

PATIENT
  Age: 22 Year
  Sex: Female
  Weight: 65 kg

DRUGS (3)
  1. KETOCONAZOLE [Suspect]
     Indication: VAGINAL INFECTION
     Route: 065
  2. TRAMADOL HYDROCHLORIDE [Suspect]
     Route: 065
  3. TRAMADOL HYDROCHLORIDE [Suspect]
     Indication: DYSMENORRHOEA
     Route: 065

REACTIONS (14)
  - LOSS OF CONSCIOUSNESS [None]
  - CARDIAC ARREST [None]
  - LACTIC ACIDOSIS [None]
  - RENAL FAILURE [None]
  - HEPATIC FAILURE [None]
  - SHOCK [None]
  - CARDIAC FAILURE CONGESTIVE [None]
  - COAGULOPATHY [None]
  - MYDRIASIS [None]
  - INTENTIONAL OVERDOSE [None]
  - DRUG DEPENDENCE [None]
  - DRUG ABUSE [None]
  - HYPOTHERMIA [None]
  - HYPOGLYCAEMIA [None]
